FAERS Safety Report 23960885 (Version 2)
Quarter: 2024Q3

REPORT INFORMATION
  Report Type: Report from Study
  Country: GB (occurrence: GB)
  Receive Date: 20240611
  Receipt Date: 20240816
  Transmission Date: 20241017
  Serious: Yes (Other)
  Sender: NOVARTIS
  Company Number: GB-002147023-NVSC2024GB047686

PATIENT
  Sex: Male

DRUGS (3)
  1. COSENTYX [Suspect]
     Active Substance: SECUKINUMAB
     Indication: Ankylosing spondylitis
     Dosage: 150 MG, ON WEEKS 0, 1, 2, 3 AND 4 FOLLOWED BY ONCE MONTHLY
     Route: 058
     Dates: start: 20240227
  2. COSENTYX [Suspect]
     Active Substance: SECUKINUMAB
     Indication: Multiple sclerosis
  3. VITAMIN D [Concomitant]
     Active Substance: VITAMIN D NOS
     Indication: Product used for unknown indication
     Dosage: UNK
     Route: 065

REACTIONS (10)
  - Optic neuritis [Unknown]
  - Myocardial infarction [Unknown]
  - Pharyngeal ulceration [Unknown]
  - Spinal pain [Unknown]
  - Back pain [Unknown]
  - Discomfort [Unknown]
  - Abdominal pain upper [Unknown]
  - Pharyngitis [Unknown]
  - Blood bilirubin increased [Unknown]
  - Axial spondyloarthritis [Unknown]
